FAERS Safety Report 4902357-1 (Version None)
Quarter: 2006Q1

REPORT INFORMATION
  Report Type: 
  Country: None (occurrence: None)
  Receive Date: 20060202
  Receipt Date: 20060202
  Transmission Date: 20060701
  Serious: Yes (Hospitalization)
  Sender: FDA-Public Use
  Company Number: None

PATIENT
  Age: 79 Year
  Sex: Female
  Weight: 49.4421 kg

DRUGS (6)
  1. XELODA [Suspect]
     Indication: COLON CANCER METASTATIC
     Dosage: 1500MG BID X14 DAYS
     Dates: start: 20051206, end: 20060118
  2. BEVACIZUMAB [Suspect]
     Indication: COLON CANCER METASTATIC
     Dosage: 7.5MGKG Q 3 WK IV
     Route: 042
     Dates: start: 20051206, end: 20060118
  3. SYNTHROID [Concomitant]
  4. LAXAPRO [Concomitant]
  5. ESTRADIOL [Concomitant]
  6. PROVERA [Concomitant]

REACTIONS (4)
  - DEHYDRATION [None]
  - DIARRHOEA [None]
  - DIZZINESS [None]
  - SYNCOPE [None]
